FAERS Safety Report 9379361 (Version 1)
Quarter: 2013Q2

REPORT INFORMATION
  Report Type: Spontaneous
  Country: US (occurrence: None)
  Receive Date: 20130415
  Receipt Date: 20130415
  Transmission Date: 20140414
  Serious: Yes (Death, Hospitalization)
  Sender: FDA-Public Use
  Company Number: 2013US001221

PATIENT
  Age: 60 Year
  Sex: Male
  Weight: 110 kg

DRUGS (11)
  1. ICLUSIG [Suspect]
     Indication: CHRONIC MYELOID LEUKAEMIA
     Route: 048
     Dates: start: 20130206, end: 20130219
  2. ICLUSIG [Suspect]
     Indication: ACUTE LYMPHOCYTIC LEUKAEMIA
     Route: 048
     Dates: start: 20130206, end: 20130219
  3. CEFEPIME (CEFEPIME) [Concomitant]
  4. ENOXAPARIN (ENOXAPARIN) [Concomitant]
  5. INSULIN (INSULIN) [Concomitant]
  6. MICAFUNGIN (MICAFUNGIN) [Concomitant]
  7. PREDNISONE (PREDNISONE) [Concomitant]
  8. VALACYCLOVIR HYDROCHLORIDE (VALACLOVIR HYDROCHLORIDE) [Concomitant]
  9. BACTRIM SS (SULFAMETHOXAZOLE, TRIMETHOPRIM) [Concomitant]
  10. SIROLIMUS (SIROLIMUS) [Concomitant]
  11. AMLIKACIN (AMIKACIN) [Concomitant]

REACTIONS (5)
  - Pulmonary oedema [None]
  - Pathogen resistance [None]
  - Pneumonia [None]
  - Sepsis [None]
  - Hypertension [None]
